FAERS Safety Report 26129523 (Version 1)
Quarter: 2025Q4

REPORT INFORMATION
  Report Type: Spontaneous
  Country: EU (occurrence: EU)
  Receive Date: 20251208
  Receipt Date: 20251208
  Transmission Date: 20260117
  Serious: Yes (Life-Threatening)
  Sender: ACCORD
  Company Number: None

PATIENT
  Age: 78 Year
  Sex: Female
  Weight: 43 kg

DRUGS (3)
  1. FLUOROURACIL [Suspect]
     Active Substance: FLUOROURACIL
     Indication: Transitional cell carcinoma
     Dosage: C1
     Dates: start: 20250923, end: 20250928
  2. MITOMYCIN [Concomitant]
     Active Substance: MITOMYCIN
     Indication: Transitional cell carcinoma
     Dates: start: 20250923, end: 20250923
  3. FLUOROURACIL [Suspect]
     Active Substance: FLUOROURACIL
     Indication: Transitional cell carcinoma
     Dosage: C2
     Dates: start: 20251015, end: 20251017

REACTIONS (1)
  - Aortic dissection [Recovering/Resolving]

NARRATIVE: CASE EVENT DATE: 20251017
